FAERS Safety Report 8455858-6 (Version None)
Quarter: 2012Q2

REPORT INFORMATION
  Report Type: 
  Country: None (occurrence: None)
  Receive Date: 20120621
  Receipt Date: 20120611
  Transmission Date: 20120825
  Serious: Yes (Other)
  Sender: FDA-Public Use
  Company Number: CA-JNJFOC-20120605445

PATIENT
  Sex: Female
  Weight: 99.34 kg

DRUGS (7)
  1. REMICADE [Suspect]
     Indication: CROHN'S DISEASE
     Route: 042
     Dates: start: 20110524
  2. FOLIC ACID [Concomitant]
  3. SYMBICORT [Concomitant]
  4. RABEPRAZOLE SODIUM [Concomitant]
  5. METHOTREXATE [Concomitant]
  6. SINGULAIR [Concomitant]
  7. BRICANYL [Concomitant]

REACTIONS (1)
  - IRITIS [None]
